FAERS Safety Report 12675309 (Version 2)
Quarter: 2016Q3

REPORT INFORMATION
  Report Type: Spontaneous
  Country: US (occurrence: US)
  Receive Date: 20160823
  Receipt Date: 20160926
  Transmission Date: 20161109
  Serious: No
  Sender: FDA-Public Use
  Company Number: US-009507513-1608USA010581

PATIENT
  Sex: Female
  Weight: 96.15 kg

DRUGS (2)
  1. NEXPLANON [Suspect]
     Active Substance: ETONOGESTREL
     Dosage: ONE ROD PER 3 YEARS
     Route: 059
     Dates: start: 20160818
  2. NEXPLANON [Suspect]
     Active Substance: ETONOGESTREL
     Dosage: ONE ROD PER 3 YEARS
     Route: 059
     Dates: start: 20150826, end: 20160818

REACTIONS (2)
  - Device kink [Recovered/Resolved]
  - Device breakage [Recovered/Resolved]
